FAERS Safety Report 21452506 (Version 1)
Quarter: 2022Q4

REPORT INFORMATION
  Report Type: Spontaneous
  Country: US (occurrence: None)
  Receive Date: 20221012
  Receipt Date: 20221012
  Transmission Date: 20230112
  Serious: Yes (Life-Threatening, Hospitalization)
  Sender: FDA-Public Use
  Company Number: None

PATIENT
  Age: 46 Year
  Sex: Male
  Weight: 73.1 kg

DRUGS (1)
  1. COPAXONE [Suspect]
     Active Substance: GLATIRAMER ACETATE
     Indication: Multiple sclerosis
     Dosage: FREQUENCY : 3 TIMES A DAY;?
     Route: 058
     Dates: start: 2017, end: 20220927

REACTIONS (11)
  - Flushing [None]
  - Throat tightness [None]
  - Dyspnoea [None]
  - Loss of consciousness [None]
  - Face injury [None]
  - Loss of consciousness [None]
  - Hypersensitivity [None]
  - Troponin increased [None]
  - Electrocardiogram ST-T change [None]
  - Acute myocardial infarction [None]
  - Immediate post-injection reaction [None]

NARRATIVE: CASE EVENT DATE: 20220927
